FAERS Safety Report 9668882 (Version 3)
Quarter: 2013Q4

REPORT INFORMATION
  Report Type: Spontaneous
  Country: US (occurrence: US)
  Receive Date: 20131105
  Receipt Date: 20131226
  Transmission Date: 20140711
  Serious: Yes (Hospitalization, Other)
  Sender: FDA-Public Use
  Company Number: PHEH2008US011965

PATIENT
  Age: 73 Year
  Sex: Female
  Weight: 70.9 kg

DRUGS (45)
  1. NEURONTIN [Concomitant]
  2. HEMODIALYSIS [Concomitant]
     Indication: PLASMA CELL MYELOMA
  3. ASPIRIN ^BAYER^ [Concomitant]
  4. PAMELOR [Concomitant]
     Indication: LIMB DISCOMFORT
  5. EPOGEN [Concomitant]
  6. RENAGEL [Concomitant]
  7. RENA-VITE [Concomitant]
  8. FUROSEMIDE [Concomitant]
  9. POTASSIUM [Concomitant]
  10. ARANESP [Concomitant]
  11. DEXAMETHASONE [Concomitant]
  12. BACTRIM [Concomitant]
  13. THALIDOMIDE [Concomitant]
  14. ZOFRAN [Concomitant]
     Dosage: 8 MG, UNK
  15. MVI [Concomitant]
  16. ASA [Concomitant]
     Dosage: 81 MG, QD
     Route: 048
  17. FLEXERIL [Concomitant]
     Dosage: 5 MG, Q8H PRN
     Route: 048
  18. TYLENOL [Concomitant]
     Dosage: 1 DF, Q6H PRN
     Route: 048
  19. NEPHRO-VITE [Concomitant]
     Indication: RENAL FAILURE
  20. ZEMPLAR [Concomitant]
  21. SODIUM BICARBONATE [Concomitant]
     Dosage: 650 MG, TID
  22. PYRIDOXINE [Concomitant]
     Dosage: 50 MG, QD
  23. K-DUR [Concomitant]
     Dosage: 10 MEQ, QD
  24. ZOVIRAX [Concomitant]
     Dosage: 200 MG, Q48H
     Route: 048
  25. NEUPOGEN [Concomitant]
     Dosage: 300 UG, UNK
  26. IMODIUM [Concomitant]
     Dosage: 2 MG, Q6H PRN
     Route: 048
  27. PEPCID [Concomitant]
     Dosage: 20 MG, QD
     Route: 048
  28. LASIX [Concomitant]
  29. NYSTATIN [Concomitant]
  30. CEFEPIME [Concomitant]
     Dosage: 1 G, Q12H
     Route: 042
  31. PROTONIX ^PHARMACIA^ [Concomitant]
     Dosage: 40 MG, QD
     Route: 048
  32. ALBUTEROL [Concomitant]
  33. ATIVAN [Concomitant]
     Route: 042
  34. HECTOROL [Concomitant]
  35. AREDIA [Suspect]
     Indication: PLASMA CELL MYELOMA
     Dosage: 90 MG, QMO
     Route: 042
     Dates: start: 20000914
  36. AREDIA [Suspect]
     Dosage: QMO
     Route: 042
     Dates: start: 2002
  37. ZOMETA [Suspect]
     Indication: PLASMA CELL MYELOMA
     Dosage: 4 MG,
     Dates: end: 200505
  38. ZOMETA [Suspect]
     Dates: start: 200607
  39. OXYCONTIN [Concomitant]
     Indication: PAIN
  40. VICODIN [Concomitant]
  41. RYTHMOL ^KNOLL^ [Concomitant]
     Dosage: 50 MG, 2QD
  42. IRON [Concomitant]
  43. VIOXX [Concomitant]
     Dosage: 2 QD
  44. HYDROCODONE [Concomitant]
     Indication: PAIN
  45. INTERFERON [Concomitant]
     Indication: PLASMA CELL MYELOMA

REACTIONS (133)
  - Intervertebral disc protrusion [Recovered/Resolved]
  - Fall [Recovered/Resolved]
  - Joint injury [Recovered/Resolved]
  - Back pain [Recovered/Resolved]
  - Arthralgia [Recovered/Resolved]
  - Muscular weakness [Recovered/Resolved]
  - Radicular pain [Recovered/Resolved]
  - Tooth disorder [Unknown]
  - Impaired healing [Unknown]
  - Osteonecrosis of jaw [Unknown]
  - Oral papule [Unknown]
  - Oral pain [Unknown]
  - Bone disorder [Unknown]
  - Osteitis [Unknown]
  - Pain in jaw [Unknown]
  - Back disorder [Unknown]
  - Primary sequestrum [Unknown]
  - Salivary gland disorder [Unknown]
  - Periodontal disease [Unknown]
  - Osteolysis [Unknown]
  - Abscess oral [Unknown]
  - Limb discomfort [Unknown]
  - Hypoaesthesia [Unknown]
  - Plasmacytosis [Unknown]
  - Lumbar spinal stenosis [Unknown]
  - Dehydration [Unknown]
  - Pancytopenia [Unknown]
  - Hypocalcaemia [Unknown]
  - Osteoporosis [Unknown]
  - Oedema [Unknown]
  - Osteopenia [Unknown]
  - Renal failure [Unknown]
  - Arteriovenous fistula [Unknown]
  - Proteinuria [Unknown]
  - Osteomyelitis [Unknown]
  - Glaucoma [Unknown]
  - Fistula [Unknown]
  - Periodontitis [Unknown]
  - Sialoadenitis [Unknown]
  - Lymphadenopathy [Recovered/Resolved]
  - Diarrhoea [Unknown]
  - Vomiting [Unknown]
  - Injury [Unknown]
  - Pain [Unknown]
  - Infection [Unknown]
  - Anxiety [Unknown]
  - Physical disability [Unknown]
  - Body dysmorphic disorder [Unknown]
  - Neuropathy peripheral [Unknown]
  - Nephrotic syndrome [Unknown]
  - Cellulitis [Unknown]
  - Cerebrovascular disorder [Unknown]
  - Renal failure chronic [Unknown]
  - Blood creatinine increased [Unknown]
  - Hypertension [Unknown]
  - Spondylolysis [Unknown]
  - Hepatic steatosis [Unknown]
  - Diverticulum [Unknown]
  - Dyspnoea [Unknown]
  - Oedema peripheral [Unknown]
  - Dizziness [Unknown]
  - Otitis media [Unknown]
  - Nephrosclerosis [Unknown]
  - Electrolyte imbalance [Unknown]
  - Thrombocytopenia [Unknown]
  - Osteosclerosis [Unknown]
  - Spondyloarthropathy [Unknown]
  - Ligament disorder [Unknown]
  - Cough [Unknown]
  - Oropharyngeal pain [Unknown]
  - Sinus congestion [Unknown]
  - Haemangioma of bone [Unknown]
  - Hypogammaglobulinaemia [Unknown]
  - Immunoglobulins decreased [Unknown]
  - Toothache [Unknown]
  - Sepsis [Unknown]
  - Impaired gastric emptying [Unknown]
  - Plasma cell myeloma [Unknown]
  - Intervertebral disc space narrowing [Unknown]
  - Bone marrow oedema [Unknown]
  - Delirium [Unknown]
  - Blood parathyroid hormone increased [Unknown]
  - Blood albumin decreased [Unknown]
  - Blood bicarbonate decreased [Unknown]
  - Blood phosphorus increased [Unknown]
  - Mean cell haemoglobin increased [Unknown]
  - Mean cell haemoglobin concentration decreased [Unknown]
  - Mean cell volume increased [Unknown]
  - Mucosal inflammation [Unknown]
  - Neutropenia [Unknown]
  - Bone abscess [Unknown]
  - Anaemia macrocytic [Unknown]
  - Ligament sprain [Unknown]
  - Hypokalaemia [Unknown]
  - Escherichia infection [Unknown]
  - Lymphadenopathy mediastinal [Unknown]
  - Interstitial lung disease [Unknown]
  - Pleural effusion [Unknown]
  - Carotid artery stenosis [Unknown]
  - Hyperphosphataemia [Unknown]
  - Cardiomegaly [Unknown]
  - Mitral valve calcification [Unknown]
  - Confusional state [Unknown]
  - Cerebral ventricle dilatation [Unknown]
  - Vascular calcification [Unknown]
  - Tinnitus [Unknown]
  - Spondylolisthesis [Unknown]
  - Mass [Unknown]
  - Bronchitis [Unknown]
  - Thyroid disorder [Unknown]
  - Lip disorder [Unknown]
  - Urinary incontinence [Unknown]
  - Aortic dilatation [Unknown]
  - Kyphosis [Unknown]
  - Hyperparathyroidism secondary [Unknown]
  - Exostosis [Unknown]
  - Mental status changes [Unknown]
  - Kwashiorkor [Unknown]
  - Spinal osteoarthritis [Unknown]
  - Renal atrophy [Unknown]
  - Chest pain [Unknown]
  - Swelling face [Unknown]
  - Abscess neck [Unknown]
  - Bacterial infection [Unknown]
  - Pleurisy [Unknown]
  - Arteriovenous graft site infection [Unknown]
  - Febrile neutropenia [Unknown]
  - Hyperkalaemia [Unknown]
  - Mononeuritis [Unknown]
  - Intervertebral disc degeneration [Unknown]
  - Clostridium difficile colitis [Unknown]
  - Back injury [Unknown]
  - Calcinosis [Unknown]
